FAERS Safety Report 23386394 (Version 1)
Quarter: 2024Q1

REPORT INFORMATION
  Report Type: Spontaneous
  Country: EG (occurrence: EG)
  Receive Date: 20240110
  Receipt Date: 20240110
  Transmission Date: 20240410
  Serious: Yes (Hospitalization, Other)
  Sender: FDA-Public Use
  Company Number: EG-SA-SAC20240109000683

PATIENT
  Age: 65 Year
  Sex: Female

DRUGS (1)
  1. ENOXAPARIN SODIUM [Suspect]
     Active Substance: ENOXAPARIN SODIUM
     Indication: Thrombosis prophylaxis
     Dosage: 40 MG QD

REACTIONS (6)
  - Herpes zoster [Unknown]
  - Paraesthesia [Unknown]
  - Pneumonia [Unknown]
  - Rectal haemorrhage [Unknown]
  - Erythema [Unknown]
  - Platelet count decreased [Unknown]
